FAERS Safety Report 18580292 (Version 5)
Quarter: 2022Q3

REPORT INFORMATION
  Report Type: Report from Study
  Country: AR (occurrence: AR)
  Receive Date: 20201204
  Receipt Date: 20220927
  Transmission Date: 20221026
  Serious: Yes (Hospitalization, Other)
  Sender: FDA-Public Use
  Company Number: AR-TAKEDA-2020TUS053516

PATIENT
  Age: 4 Year
  Sex: Male

DRUGS (3)
  1. IDURSULFASE [Suspect]
     Active Substance: IDURSULFASE
     Indication: Enzyme supplementation
     Dosage: UNK UNK, 1/WEEK
     Route: 050
  2. IDURSULFASE [Suspect]
     Active Substance: IDURSULFASE
     Dosage: 2 DOSAGE FORM, QD
     Route: 042
     Dates: start: 20161018
  3. IDURSULFASE [Suspect]
     Active Substance: IDURSULFASE
     Dosage: 2 DOSAGE FORM, 1/WEEK
     Route: 042
     Dates: start: 20161018

REACTIONS (7)
  - Adverse event [Unknown]
  - Catheter placement [Recovered/Resolved]
  - Angina pectoris [Unknown]
  - SARS-CoV-2 test positive [Recovered/Resolved]
  - Unevaluable event [Recovered/Resolved]
  - Product dose omission issue [Unknown]
  - Pyrexia [Recovered/Resolved]

NARRATIVE: CASE EVENT DATE: 20201113
